FAERS Safety Report 7084256-5 (Version None)
Quarter: 2010Q4

REPORT INFORMATION
  Report Type: 
  Country: None (occurrence: None)
  Receive Date: 20101104
  Receipt Date: 20101101
  Transmission Date: 20110411
  Serious: Yes (Hospitalization)
  Sender: FDA-Public Use
  Company Number: DE-PFIZER INC-2010138575

PATIENT
  Sex: Male

DRUGS (1)
  1. LONOLOX [Suspect]
     Indication: HYPERTENSION
     Dosage: UNK

REACTIONS (2)
  - ASCITES [None]
  - PLEURAL EFFUSION [None]
